FAERS Safety Report 12527250 (Version 1)
Quarter: 2016Q3

REPORT INFORMATION
  Report Type: Spontaneous
  Country: JP (occurrence: JP)
  Receive Date: 20160705
  Receipt Date: 20160705
  Transmission Date: 20161109
  Serious: Yes (Hospitalization)
  Sender: FDA-Public Use
  Company Number: JP-BAYER-2016-124153

PATIENT
  Age: 70 Year
  Sex: Male

DRUGS (2)
  1. CEROCRAL [Concomitant]
     Active Substance: IFENPRODIL
     Dosage: UNK
     Route: 048
  2. BAYASPIRIN [Suspect]
     Active Substance: ASPIRIN
     Dosage: UNK
     Route: 048

REACTIONS (3)
  - Haemorrhagic anaemia [Recovered/Resolved]
  - Radiation proctitis [Recovered/Resolved]
  - Haemorrhagic diathesis [Recovered/Resolved]

NARRATIVE: CASE EVENT DATE: 201507
